FAERS Safety Report 25225536 (Version 1)
Quarter: 2025Q2

REPORT INFORMATION
  Report Type: Spontaneous
  Country: CN (occurrence: CN)
  Receive Date: 20250422
  Receipt Date: 20250422
  Transmission Date: 20250716
  Serious: Yes (Hospitalization, Other)
  Sender: COSETTE PHARMACEUTICALS INC
  Company Number: CN-ASTELLAS-2025-AER-020811

PATIENT
  Age: 87 Year
  Sex: Male

DRUGS (5)
  1. AMBIEN [Suspect]
     Active Substance: ZOLPIDEM TARTRATE
     Indication: Product used for unknown indication
     Route: 065
     Dates: start: 20250310, end: 20250311
  2. HARNAL [Suspect]
     Active Substance: TAMSULOSIN HYDROCHLORIDE
     Indication: Benign prostatic hyperplasia
     Dosage: 0.2 MG, QD
     Route: 048
     Dates: start: 20250301, end: 20250310
  3. ROCEKIN [Concomitant]
     Indication: Pneumonia
     Dosage: 2 G, QD(ROUTE OF ADMIN (FREE TEXT): INTRAVENOUS DRIP)
     Route: 041
     Dates: start: 20250301, end: 20250310
  4. SPIRONOLACTONE [Concomitant]
     Active Substance: SPIRONOLACTONE
     Indication: Cardiac failure
     Dosage: 20 MG, QD
     Route: 048
     Dates: start: 20250301, end: 20250311
  5. ATORVASTATIN CALCIUM [Concomitant]
     Active Substance: ATORVASTATIN CALCIUM
     Indication: Arteriosclerosis
     Dosage: 20 MG, QD
     Route: 048
     Dates: start: 20250301, end: 20250311

REACTIONS (7)
  - Loss of consciousness [Recovered/Resolved]
  - Heart rate increased [Recovering/Resolving]
  - Platelet count decreased [Recovering/Resolving]
  - Dysphoria [Recovering/Resolving]
  - Delirium [Recovered/Resolved]
  - Hypotension [Recovering/Resolving]
  - Disorganised speech [Recovering/Resolving]

NARRATIVE: CASE EVENT DATE: 20250309
